FAERS Safety Report 18772579 (Version 1)
Quarter: 2021Q1

REPORT INFORMATION
  Report Type: Spontaneous
  Country: US (occurrence: US)
  Receive Date: 20210121
  Receipt Date: 20210121
  Transmission Date: 20210419
  Serious: No
  Sender: FDA-Public Use
  Company Number: None

PATIENT
  Age: 66 Year
  Sex: Female
  Weight: 107.9 kg

DRUGS (2)
  1. REGENERON ? IMDEVIMAB [Suspect]
     Active Substance: IMDEVIMAB
     Indication: COVID-19
     Dosage: ?          OTHER FREQUENCY:ONCE;?
     Route: 042
     Dates: start: 20210121, end: 20210121
  2. REGENERON ? CASIRIVIMAB [Suspect]
     Active Substance: CASIRIVIMAB
     Indication: COVID-19
     Dosage: ?          OTHER FREQUENCY:ONCE;?
     Route: 042
     Dates: start: 20210121, end: 20210121

REACTIONS (6)
  - Urticaria [None]
  - Ear pruritus [None]
  - Hypoaesthesia oral [None]
  - Infusion related reaction [None]
  - Rash erythematous [None]
  - Paraesthesia oral [None]

NARRATIVE: CASE EVENT DATE: 20210121
